FAERS Safety Report 25280792 (Version 2)
Quarter: 2025Q2

REPORT INFORMATION
  Report Type: Spontaneous
  Country: AR (occurrence: AR)
  Receive Date: 20250508
  Receipt Date: 20250603
  Transmission Date: 20250716
  Serious: Yes (Other)
  Sender: AMGEN
  Company Number: AR-AMGEN-ARGSP2025087646

PATIENT
  Age: 5 Year
  Sex: Male

DRUGS (2)
  1. BLINCYTO [Suspect]
     Active Substance: BLINATUMOMAB
     Indication: Acute lymphocytic leukaemia
     Dosage: 5 MICROGRAM/SQ. METER, QD
     Route: 065
     Dates: start: 20250428, end: 20250429
  2. BLINCYTO [Suspect]
     Active Substance: BLINATUMOMAB
     Route: 065
     Dates: start: 2025

REACTIONS (2)
  - Generalised tonic-clonic seizure [Recovered/Resolved]
  - Neurotoxicity [Unknown]

NARRATIVE: CASE EVENT DATE: 20250401
